FAERS Safety Report 4710842-0 (Version None)
Quarter: 2005Q3

REPORT INFORMATION
  Report Type: 
  Country: None (occurrence: None)
  Receive Date: 20050708
  Receipt Date: 20050629
  Transmission Date: 20060218
  Serious: Yes (Other)
  Sender: FDA-Public Use
  Company Number: 05-06-1132

PATIENT
  Age: 48 Year
  Sex: Female

DRUGS (2)
  1. PROBENECID + COLCHICINE [Suspect]
     Indication: GOUT
  2. ALLOPURINOL [Concomitant]

REACTIONS (6)
  - EOSINOPHILIA [None]
  - LYMPHADENOPATHY [None]
  - PYREXIA [None]
  - RASH [None]
  - RENAL FAILURE ACUTE [None]
  - TRANSAMINASES INCREASED [None]
